FAERS Safety Report 4754052-X (Version None)
Quarter: 2005Q3

REPORT INFORMATION
  Report Type: 
  Country: None (occurrence: None)
  Receive Date: 20050826
  Receipt Date: 20050818
  Transmission Date: 20060218
  Serious: Yes (Death)
  Sender: FDA-Public Use
  Company Number: US-MERCK-0508USA03373

PATIENT
  Age: 81 Year
  Sex: Female
  Weight: 70 kg

DRUGS (8)
  1. VIOXX [Suspect]
     Indication: ARTHRITIS
     Route: 048
     Dates: start: 20000902, end: 20030114
  2. VIOXX [Suspect]
     Route: 048
     Dates: start: 20030114, end: 20030421
  3. NORVASC [Concomitant]
     Route: 065
  4. TRAZODONE HYDROCHLORIDE [Concomitant]
     Route: 065
  5. ACCURETIC [Concomitant]
     Route: 065
  6. NASACORT AQ [Concomitant]
     Route: 065
  7. CLONAZEPAM [Concomitant]
     Route: 065
  8. PRAVACHOL [Concomitant]
     Route: 065

REACTIONS (2)
  - DEATH [None]
  - PAIN IN EXTREMITY [None]
